FAERS Safety Report 6497563-1 (Version None)
Quarter: 2009Q4

REPORT INFORMATION
  Report Type: 
  Country: None (occurrence: None)
  Receive Date: 20091215
  Receipt Date: 20091202
  Transmission Date: 20100525
  Serious: No
  Sender: FDA-Public Use
  Company Number: US-ELI_LILLY_AND_COMPANY-US200912001023

PATIENT
  Sex: Male

DRUGS (3)
  1. CIALIS [Suspect]
     Indication: ERECTILE DYSFUNCTION
     Dosage: 20 MG, AS NEEDED
     Route: 065
     Dates: start: 20091129, end: 20091129
  2. COREG CR [Concomitant]
     Dosage: UNK, UNKNOWN
     Route: 065
  3. ATIVAN [Concomitant]
     Dosage: 2 MG, DAILY (1/D)
     Route: 065

REACTIONS (5)
  - HEADACHE [None]
  - HYPOAESTHESIA [None]
  - LACRIMATION INCREASED [None]
  - THERAPEUTIC RESPONSE DECREASED [None]
  - VISION BLURRED [None]
